FAERS Safety Report 19607239 (Version 5)
Quarter: 2022Q2

REPORT INFORMATION
  Report Type: Other
  Country: DE (occurrence: None)
  Receive Date: 20210726
  Receipt Date: 20220530
  Transmission Date: 20220721
  Serious: Yes (Hospitalization, Other)
  Sender: FDA-Public Use
  Company Number: DE-ROCHE-2690173

PATIENT
  Age: 31 Year
  Sex: Female
  Weight: 95 kg

DRUGS (6)
  1. OCREVUS [Suspect]
     Active Substance: OCRELIZUMAB
     Indication: Relapsing-remitting multiple sclerosis
     Dosage: NEXT DOSE RECEIVED WAS 600 MG
     Route: 042
     Dates: start: 20180401
  2. OCREVUS [Suspect]
     Active Substance: OCRELIZUMAB
     Route: 042
     Dates: start: 20200402
  3. OCREVUS [Suspect]
     Active Substance: OCRELIZUMAB
     Route: 042
     Dates: start: 20201001
  4. OCREVUS [Suspect]
     Active Substance: OCRELIZUMAB
     Route: 042
     Dates: start: 20210401
  5. OCREVUS [Suspect]
     Active Substance: OCRELIZUMAB
     Route: 042
     Dates: start: 20211021
  6. CARBAMAZEPINE [Concomitant]
     Active Substance: CARBAMAZEPINE

REACTIONS (30)
  - Cardiovascular insufficiency [Recovered/Resolved]
  - Multiple sclerosis [Not Recovered/Not Resolved]
  - Compartment syndrome [Not Recovered/Not Resolved]
  - Paraesthesia [Recovered/Resolved]
  - Abdominal pain upper [Recovered/Resolved]
  - Pallor [Recovered/Resolved]
  - Alopecia [Not Recovered/Not Resolved]
  - Alopecia [Recovered/Resolved]
  - Vomiting [Recovered/Resolved]
  - Vomiting [Recovered/Resolved]
  - Flushing [Recovered/Resolved]
  - Flushing [Recovered/Resolved]
  - Dizziness [Recovered/Resolved]
  - Nausea [Not Recovered/Not Resolved]
  - Nausea [Recovered/Resolved]
  - Myalgia [Recovered/Resolved]
  - Pallor [Not Recovered/Not Resolved]
  - Paraesthesia [Recovering/Resolving]
  - Weight decreased [Not Recovered/Not Resolved]
  - Vitamin D decreased [Not Recovered/Not Resolved]
  - Skin burning sensation [Unknown]
  - Myalgia [Unknown]
  - Blister [Unknown]
  - Paraesthesia [Recovering/Resolving]
  - Wound [Recovered/Resolved]
  - Muscle spasms [Not Recovered/Not Resolved]
  - Enterococcus test positive [Recovering/Resolving]
  - Peripheral swelling [Recovering/Resolving]
  - Pain in extremity [Recovering/Resolving]
  - Fluid retention [Not Recovered/Not Resolved]

NARRATIVE: CASE EVENT DATE: 20200402
